FAERS Safety Report 25667554 (Version 1)
Quarter: 2025Q3

REPORT INFORMATION
  Report Type: Report from Study
  Country: US (occurrence: US)
  Receive Date: 20250811
  Receipt Date: 20250811
  Transmission Date: 20251020
  Serious: Yes (Hospitalization)
  Sender: BIOGEN
  Company Number: US-BIOGEN-2025BI01319769

PATIENT
  Sex: Female

DRUGS (1)
  1. VUMERITY [Suspect]
     Active Substance: DIROXIMEL FUMARATE
     Indication: Multiple sclerosis
     Dosage: 462MG TWICE DAILY
     Route: 050
     Dates: start: 20241011

REACTIONS (5)
  - Asthenia [Unknown]
  - Dysstasia [Not Recovered/Not Resolved]
  - Mobility decreased [Unknown]
  - Urinary tract infection [Unknown]
  - Herpes zoster [Unknown]
